FAERS Safety Report 6177998-7 (Version None)
Quarter: 2009Q2

REPORT INFORMATION
  Report Type: 
  Country: None (occurrence: None)
  Receive Date: 20090501
  Receipt Date: 20090501
  Transmission Date: 20091009
  Serious: Yes (Other)
  Sender: FDA-Public Use
  Company Number: None

PATIENT
  Age: 30 Year
  Sex: Female
  Weight: 56.3 kg

DRUGS (5)
  1. KALETRA [Suspect]
     Indication: HIV INFECTION
     Dosage: 200/50 MG BID ORAL
     Route: 048
     Dates: start: 20061201
  2. TRUVADA [Suspect]
     Indication: HIV INFECTION
     Dosage: 200/300 MG QD ORAL
     Route: 048
     Dates: start: 20061201
  3. GENTAMYCIN SULFATE [Concomitant]
  4. ERYTHROMYCIN [Concomitant]
  5. PARACETAMOL [Concomitant]

REACTIONS (13)
  - ABDOMINAL PAIN [None]
  - ABORTION COMPLETE [None]
  - CD4 LYMPHOCYTES DECREASED [None]
  - DRUG EXPOSURE DURING PREGNANCY [None]
  - HAEMATOCRIT DECREASED [None]
  - PERITONEAL ADHESIONS [None]
  - PLATELET COUNT INCREASED [None]
  - PREGNANCY [None]
  - RED BLOOD CELL COUNT DECREASED [None]
  - RESPIRATORY RATE INCREASED [None]
  - TUBO-OVARIAN ABSCESS [None]
  - VAGINAL HAEMORRHAGE [None]
  - WHITE BLOOD CELL COUNT DECREASED [None]
